FAERS Safety Report 21498071 (Version 1)
Quarter: 2022Q4

REPORT INFORMATION
  Report Type: Spontaneous
  Country: CN (occurrence: CN)
  Receive Date: 20221024
  Receipt Date: 20221024
  Transmission Date: 20230113
  Serious: Yes (Other)
  Sender: FDA-Public Use
  Company Number: None

PATIENT
  Age: 23 Year
  Sex: Female
  Weight: 54 kg

DRUGS (7)
  1. CYCLOPHOSPHAMIDE [Suspect]
     Active Substance: CYCLOPHOSPHAMIDE
     Indication: Breast cancer female
     Dosage: (CTX), 800 MG, QD, DILUTED WITH SODIUM CHLORIDE 40 ML, SECOND CHEMOTHERAPY
     Route: 042
     Dates: start: 20220720, end: 20220720
  2. CYCLOPHOSPHAMIDE [Suspect]
     Active Substance: CYCLOPHOSPHAMIDE
     Indication: Chemotherapy
  3. SODIUM CHLORIDE [Suspect]
     Active Substance: SODIUM CHLORIDE
     Indication: Medication dilution
     Dosage: 40 ML, QD, DILUTED IN CYCLOPHOSPHAMIDE 800 MG, SECOND CHEMOTHERAPY
     Route: 042
     Dates: start: 20220720, end: 20220720
  4. SODIUM CHLORIDE [Suspect]
     Active Substance: SODIUM CHLORIDE
     Dosage: 100 ML, QD, DILUTED IN PHARMORUBICIN 123 MG, SECOND CHEMOTHERAPY
     Route: 041
     Dates: start: 20220720, end: 20220720
  5. EPIRUBICIN [Suspect]
     Active Substance: EPIRUBICIN
     Indication: Breast cancer female
     Dosage: 123 MG, QD, DILUTED WITH SODIUM CHLORIDE 100 ML, SECOND CHEMOTHERAPY
     Route: 041
     Dates: start: 20220720, end: 20220720
  6. EPIRUBICIN [Suspect]
     Active Substance: EPIRUBICIN
     Indication: Chemotherapy
  7. MECAPEGFILGRASTIM [Concomitant]
     Active Substance: MECAPEGFILGRASTIM
     Indication: Product used for unknown indication
     Dosage: 6 MG, GIVEN ON THE THIRD DAY
     Route: 058
     Dates: start: 202207

REACTIONS (2)
  - White blood cell count decreased [Recovered/Resolved]
  - Agranulocytosis [Recovered/Resolved]

NARRATIVE: CASE EVENT DATE: 20220727
